FAERS Safety Report 7651266-6 (Version None)
Quarter: 2011Q3

REPORT INFORMATION
  Report Type: 
  Country: None (occurrence: None)
  Receive Date: 20110727
  Receipt Date: 20110712
  Transmission Date: 20111222
  Serious: Yes (Hospitalization)
  Sender: FDA-Public Use
  Company Number: 1000022288

PATIENT
  Sex: Male
  Weight: 3.91 kg

DRUGS (2)
  1. ESCITALOPRAM [Suspect]
     Dosage: 10 MG (10 MG, 1 IN 1 D), TRANSPLACENTAL; 5 MG (5 MG, 1 IN 1 D), TRANSPLACENTAL
     Route: 064
     Dates: start: 20110101, end: 20110401
  2. ESCITALOPRAM [Suspect]
     Dosage: 10 MG (10 MG, 1 IN 1 D), TRANSPLACENTAL; 5 MG (5 MG, 1 IN 1 D), TRANSPLACENTAL
     Route: 064
     Dates: start: 20110131

REACTIONS (3)
  - MATERNAL DRUGS AFFECTING FOETUS [None]
  - PULMONARY OEDEMA NEONATAL [None]
  - CAESAREAN SECTION [None]
